FAERS Safety Report 10072532 (Version 1)
Quarter: 2014Q2

REPORT INFORMATION
  Report Type: Spontaneous
  Country: US (occurrence: None)
  Receive Date: 20140409
  Receipt Date: 20140409
  Transmission Date: 20141212
  Serious: Yes (Other)
  Sender: FDA-Public Use
  Company Number: HRA-CDB20140049

PATIENT
  Age: 39 Year
  Sex: Female
  Weight: 68.04 kg

DRUGS (1)
  1. ELLA [Suspect]
     Indication: POST COITAL CONTRACEPTION
     Dates: start: 20140115

REACTIONS (3)
  - Unintended pregnancy [None]
  - Pregnancy test positive [None]
  - Abortion spontaneous [None]
